FAERS Safety Report 6945751-X (Version None)
Quarter: 2010Q3

REPORT INFORMATION
  Report Type: 
  Country: None (occurrence: None)
  Receive Date: 20100827
  Receipt Date: 20100823
  Transmission Date: 20110219
  Serious: Yes (Hospitalization)
  Sender: FDA-Public Use
  Company Number: A0877250A

PATIENT
  Sex: Female

DRUGS (5)
  1. ADVAIR DISKUS 100/50 [Suspect]
     Indication: ASTHMA
     Dosage: 1PUFF TWICE PER DAY
     Route: 055
     Dates: start: 20010401
  2. GLIMEPIRIDE [Concomitant]
  3. UNSPECIFIED MEDICATION [Concomitant]
  4. XANAX [Concomitant]
  5. ALBUTEROL [Concomitant]

REACTIONS (6)
  - ASTHENIA [None]
  - DYSPNOEA [None]
  - HAEMOGLOBIN DECREASED [None]
  - HEADACHE [None]
  - NAUSEA [None]
  - TREMOR [None]
